FAERS Safety Report 17751097 (Version 1)
Quarter: 2020Q2

REPORT INFORMATION
  Report Type: Spontaneous
  Country: US (occurrence: US)
  Receive Date: 20200506
  Receipt Date: 20200506
  Transmission Date: 20200714
  Serious: Yes (Hospitalization)
  Sender: FDA-Public Use
  Company Number: None

PATIENT
  Age: 62 Year
  Sex: Female
  Weight: 79.4 kg

DRUGS (2)
  1. SODIUM CHLORIDE 0.9% 50ML [Concomitant]
     Dates: start: 20200505, end: 20200505
  2. MULTIHANCE [Suspect]
     Active Substance: GADOBENATE DIMEGLUMINE
     Indication: MAGNETIC RESONANCE IMAGING
     Dosage: ?          OTHER FREQUENCY:ONCE;?
     Route: 040

REACTIONS (5)
  - Seizure [None]
  - Nausea [None]
  - Pruritus [None]
  - Erythema [None]
  - Loss of consciousness [None]

NARRATIVE: CASE EVENT DATE: 20200505
